FAERS Safety Report 8140368 (Version 8)
Quarter: 2013Q1

REPORT INFORMATION
  Report Type: Report from Study
  Country: US (occurrence: US)
  Receive Date: 20110916
  Receipt Date: 20130208
  Transmission Date: 20140127
  Serious: Yes (Hospitalization, Other)
  Sender: FDA-Public Use
  Company Number: US-GLAXOSMITHKLINE-R0019245A

PATIENT
  Age: 57 Year
  Sex: Female

DRUGS (7)
  1. INVESTIGATIONAL PRODUCT [Suspect]
     Route: 030
     Dates: start: 20101005, end: 20101005
  2. ALENDRONATE [Suspect]
     Indication: OSTEOPENIA
     Dosage: 70MG PER DAY
     Route: 048
     Dates: start: 201002
  3. CALCIUM [Suspect]
     Indication: OSTEOPENIA
     Dosage: 600MG PER DAY
     Route: 048
     Dates: start: 2005
  4. WELLBUTRIN SR [Suspect]
     Indication: DEPRESSION
     Dosage: 150MG PER DAY
     Route: 048
     Dates: start: 2009
  5. VYTORIN [Suspect]
     Indication: DYSLIPIDAEMIA
     Route: 048
     Dates: start: 2000
  6. AMOXICILLIN\CLAVULANATE POTASSIUM [Suspect]
     Indication: DIVERTICULITIS
     Route: 048
     Dates: start: 20110818, end: 20110901
  7. INFLUENZA VACCINE [Concomitant]
     Route: 030
     Dates: start: 20120912, end: 20120912

REACTIONS (3)
  - Diverticulitis [Recovering/Resolving]
  - Anastomotic leak [Recovered/Resolved]
  - Diarrhoea [Recovered/Resolved]
